FAERS Safety Report 8594946-0 (Version None)
Quarter: 2012Q3

REPORT INFORMATION
  Report Type: 
  Country: None (occurrence: None)
  Receive Date: 20120815
  Receipt Date: 20120810
  Transmission Date: 20120928
  Serious: No
  Sender: FDA-Public Use
  Company Number: US-BAYER-2012-082535

PATIENT
  Sex: Female

DRUGS (2)
  1. BEYAZ [Suspect]
     Indication: ACNE
  2. BEYAZ [Suspect]
     Indication: MENSTRUAL DISORDER
     Route: 048

REACTIONS (2)
  - ACNE [None]
  - MENORRHAGIA [None]
